FAERS Safety Report 8559962-3 (Version None)
Quarter: 2012Q3

REPORT INFORMATION
  Report Type: 
  Country: None (occurrence: None)
  Receive Date: 20120802
  Receipt Date: 20120725
  Transmission Date: 20120928
  Serious: Yes (Hospitalization)
  Sender: FDA-Public Use
  Company Number: US-US-EMD SERONO, INC.-7093696

PATIENT
  Sex: Female
  Weight: 79 kg

DRUGS (6)
  1. ZIPSOR [Concomitant]
     Indication: PRODUCT USED FOR UNKNOWN INDICATION
     Route: 048
  2. REBIF [Suspect]
     Indication: MULTIPLE SCLEROSIS
     Route: 058
     Dates: start: 20091012
  3. TRAZODONE HYDROCHLORIDE [Concomitant]
     Indication: PRODUCT USED FOR UNKNOWN INDICATION
  4. MAXZIDE [Concomitant]
     Indication: PRODUCT USED FOR UNKNOWN INDICATION
  5. HYDROCHLOROTHIAZIDE [Concomitant]
     Indication: HYPERTENSION
     Route: 048
  6. EFFEXOR XR [Concomitant]
     Indication: DEPRESSION
     Route: 048

REACTIONS (4)
  - MULTIPLE SCLEROSIS RELAPSE [None]
  - DEHYDRATION [None]
  - GASTRITIS [None]
  - HYPOKALAEMIA [None]
